FAERS Safety Report 13697938 (Version 1)
Quarter: 2017Q2

REPORT INFORMATION
  Report Type: Spontaneous
  Country: US (occurrence: US)
  Receive Date: 20170627
  Receipt Date: 20170627
  Transmission Date: 20170830
  Serious: Yes (Disabling)
  Sender: FDA-Public Use
  Company Number: None

PATIENT
  Age: 78 Year
  Sex: Female
  Weight: 85.5 kg

DRUGS (4)
  1. CELEBREX [Concomitant]
     Active Substance: CELECOXIB
  2. NEUROTHIN [Concomitant]
  3. LIPITOR [Concomitant]
     Active Substance: ATORVASTATIN CALCIUM
  4. GENERIC XANAX [Suspect]
     Active Substance: ALPRAZOLAM
     Indication: DEATH OF RELATIVE
     Dosage: ?          OTHER STRENGTH:MG;QUANTITY:90 TABLET(S);?
     Route: 048
     Dates: start: 20100601, end: 20170627

REACTIONS (6)
  - Speech disorder [None]
  - Confusional state [None]
  - General physical health deterioration [None]
  - Withdrawal syndrome [None]
  - Anger [None]
  - Personality change [None]

NARRATIVE: CASE EVENT DATE: 20100601
